FAERS Safety Report 18453353 (Version 1)
Quarter: 2020Q4

REPORT INFORMATION
  Report Type: Spontaneous
  Country: JP (occurrence: JP)
  Receive Date: 20201102
  Receipt Date: 20201102
  Transmission Date: 20210114
  Serious: Yes (Other)
  Sender: FDA-Public Use
  Company Number: JP-JNJFOC-20201040809

PATIENT

DRUGS (9)
  1. TOFACITINIB [Suspect]
     Active Substance: TOFACITINIB
     Indication: RHEUMATOID ARTHRITIS
  2. ABATACEPT [Suspect]
     Active Substance: ABATACEPT
     Indication: RHEUMATOID ARTHRITIS
  3. REMICADE [Suspect]
     Active Substance: INFLIXIMAB
     Indication: RHEUMATOID ARTHRITIS
     Route: 042
  4. ETANERCEPT [Suspect]
     Active Substance: ETANERCEPT
     Indication: RHEUMATOID ARTHRITIS
  5. ADALIMUMAB [Suspect]
     Active Substance: ADALIMUMAB
     Indication: RHEUMATOID ARTHRITIS
  6. CERTOLIZUMAB PEGOL [Suspect]
     Active Substance: CERTOLIZUMAB PEGOL
     Indication: RHEUMATOID ARTHRITIS
  7. METHOTREXATE. [Suspect]
     Active Substance: METHOTREXATE
     Indication: RHEUMATOID ARTHRITIS
  8. SIMPONI [Suspect]
     Active Substance: GOLIMUMAB
     Indication: RHEUMATOID ARTHRITIS
     Route: 058
  9. TOCILIZUMAB. [Suspect]
     Active Substance: TOCILIZUMAB
     Indication: RHEUMATOID ARTHRITIS

REACTIONS (15)
  - Lymphoproliferative disorder [Unknown]
  - Pneumocystis jirovecii pneumonia [Unknown]
  - Renal disorder [Unknown]
  - Skin disorder [Unknown]
  - Herpes zoster [Unknown]
  - Tuberculosis [Unknown]
  - Interstitial lung disease [Unknown]
  - Gastrointestinal disorder [Unknown]
  - Procedural complication [Unknown]
  - Neoplasm [Unknown]
  - Cytopenia [Unknown]
  - Infection [Unknown]
  - Urinary tract disorder [Unknown]
  - Nervous system disorder [Unknown]
  - Pneumonia bacterial [Unknown]
